FAERS Safety Report 21079884 (Version 2)
Quarter: 2022Q4

REPORT INFORMATION
  Report Type: Spontaneous
  Country: BR (occurrence: BR)
  Receive Date: 20220714
  Receipt Date: 20221012
  Transmission Date: 20230112
  Serious: Yes (Other)
  Sender: FDA-Public Use
  Company Number: BR-CHEPLA-2022006014

PATIENT
  Sex: Female
  Weight: 70 kg

DRUGS (1)
  1. CLONAZEPAM [Suspect]
     Active Substance: CLONAZEPAM
     Indication: Epilepsy
     Dosage: 2 SUBLINGUAL TABLETS PER DAY?2020 (ABOUT 2 YEARS AGO) ?DAILY DOSE: 2 DOSAGE FORM
     Route: 060
     Dates: start: 2020, end: 202208

REACTIONS (4)
  - Epilepsy [Recovered/Resolved]
  - Malaise [Recovered/Resolved]
  - Incorrect product administration duration [Recovered/Resolved]
  - Product use issue [Recovered/Resolved]

NARRATIVE: CASE EVENT DATE: 20200101
